FAERS Safety Report 25131587 (Version 1)
Quarter: 2025Q1

REPORT INFORMATION
  Report Type: Spontaneous
  Country: US (occurrence: US)
  Receive Date: 20250327
  Receipt Date: 20250327
  Transmission Date: 20250408
  Serious: Yes (Hospitalization)
  Sender: ELI LILLY AND COMPANY
  Company Number: US-ELI_LILLY_AND_COMPANY-US202503018531

PATIENT
  Age: 58 Year
  Sex: Female

DRUGS (3)
  1. VERZENIO [Suspect]
     Active Substance: ABEMACICLIB
     Indication: Product used for unknown indication
     Route: 048
     Dates: start: 202405
  2. VERZENIO [Suspect]
     Active Substance: ABEMACICLIB
     Route: 048
  3. LEVAQUIN [Suspect]
     Active Substance: LEVOFLOXACIN
     Indication: Infection
     Route: 065

REACTIONS (4)
  - Diverticulitis [Recovered/Resolved]
  - Infection [Recovering/Resolving]
  - Tendonitis [Recovering/Resolving]
  - Neuropathy peripheral [Recovering/Resolving]
